FAERS Safety Report 7465954-8 (Version None)
Quarter: 2011Q2

REPORT INFORMATION
  Report Type: 
  Country: None (occurrence: None)
  Receive Date: 20110509
  Receipt Date: 20100510
  Transmission Date: 20111010
  Serious: No
  Sender: FDA-Public Use
  Company Number: US-ALEXION-A201000644

PATIENT
  Sex: Male

DRUGS (3)
  1. COUMADIN [Concomitant]
     Dosage: UNK
  2. SOLIRIS [Suspect]
     Indication: PAROXYSMAL NOCTURNAL HAEMOGLOBINURIA
     Dosage: 900 MG, UNK
     Route: 042
  3. MENACTRA [Suspect]
     Indication: IMMUNISATION
     Dosage: UNK
     Dates: start: 20100507, end: 20100507

REACTIONS (1)
  - RHINORRHOEA [None]
